FAERS Safety Report 7822121-3 (Version None)
Quarter: 2011Q4

REPORT INFORMATION
  Report Type: 
  Country: None (occurrence: None)
  Receive Date: 20111018
  Receipt Date: 20101207
  Transmission Date: 20120403
  Serious: No
  Sender: FDA-Public Use
  Company Number: US-ASTRAZENECA-2010SE58321

PATIENT
  Sex: Female

DRUGS (2)
  1. SYMBICORT [Suspect]
     Dosage: 160/4.5 UG
     Route: 055
  2. NEXIUM [Suspect]
     Route: 048
     Dates: end: 20100401

REACTIONS (7)
  - PNEUMONIA [None]
  - DYSPEPSIA [None]
  - GASTROOESOPHAGEAL REFLUX DISEASE [None]
  - ASTHMA [None]
  - MALAISE [None]
  - PAIN [None]
  - DRUG DOSE OMISSION [None]
